FAERS Safety Report 9339081 (Version 2)
Quarter: 2013Q2

REPORT INFORMATION
  Report Type: Spontaneous
  Country: GB (occurrence: GB)
  Receive Date: 20130610
  Receipt Date: 20130610
  Transmission Date: 20140414
  Serious: Yes (Hospitalization)
  Sender: FDA-Public Use
  Company Number: PHHY2013GB055609

PATIENT
  Age: 39 Year
  Sex: Male

DRUGS (5)
  1. CLOZAPINE [Suspect]
     Indication: SCHIZOPHRENIA
     Dosage: 550 MG, IN DIVIDED DOSES
  2. CLOZAPINE [Interacting]
     Dosage: 200 MG, IN DIVIDED DOSES
  3. VALPROIC ACID [Interacting]
     Indication: CONVULSION
     Dosage: 500 MG, BID
  4. AZITHROMYCIN [Interacting]
     Indication: URETHRITIS
     Dosage: 1 G, UNK
  5. HYOSCINE HYDROBROMIDE [Concomitant]
     Indication: SALIVARY HYPERSECRETION
     Dosage: 300 UG, BID

REACTIONS (10)
  - Toxicity to various agents [Recovered/Resolved]
  - Antipsychotic drug level increased [Recovered/Resolved]
  - Urethritis [Recovered/Resolved]
  - Urethral discharge [Recovered/Resolved]
  - Malaise [Recovered/Resolved]
  - Tremor [Unknown]
  - Gait disturbance [Unknown]
  - General physical health deterioration [Unknown]
  - Disorientation [Unknown]
  - Incoherent [Unknown]
